FAERS Safety Report 12468774 (Version 1)
Quarter: 2016Q2

REPORT INFORMATION
  Report Type: Spontaneous
  Country: US (occurrence: US)
  Receive Date: 20160615
  Receipt Date: 20160615
  Transmission Date: 20160815
  Serious: No
  Sender: FDA-Public Use
  Company Number: US-PFIZER INC-2016275320

PATIENT
  Sex: Female

DRUGS (5)
  1. GABAPENTIN. [Suspect]
     Active Substance: GABAPENTIN
     Indication: NERVE INJURY
  2. NEURONTIN [Suspect]
     Active Substance: GABAPENTIN
     Indication: WALKING DISABILITY
  3. TRAMADOL. [Concomitant]
     Active Substance: TRAMADOL
  4. GABAPENTIN. [Suspect]
     Active Substance: GABAPENTIN
     Indication: WALKING DISABILITY
  5. NEURONTIN [Suspect]
     Active Substance: GABAPENTIN
     Indication: NERVE INJURY

REACTIONS (3)
  - Skin fissures [Unknown]
  - Drug ineffective for unapproved indication [Unknown]
  - Pain in extremity [Unknown]
